FAERS Safety Report 17291834 (Version 1)
Quarter: 2020Q1

REPORT INFORMATION
  Report Type: Report from Study
  Country: US (occurrence: US)
  Receive Date: 20200121
  Receipt Date: 20200121
  Transmission Date: 20200409
  Serious: Yes (Other)
  Sender: FDA-Public Use
  Company Number: US-BAYER-2019-214863

PATIENT
  Age: 68 Year
  Sex: Male

DRUGS (1)
  1. STIVARGA [Suspect]
     Active Substance: REGORAFENIB
     Dosage: DAILY DOSE 80 MG FOR 21 DAYS, THEN 7 DAYS OFF. SWALLOW TABLETS WHOLE, WITH WATER

REACTIONS (3)
  - Off label use [None]
  - Abdominal pain [None]
  - Atrial fibrillation [None]
